FAERS Safety Report 7419039-7 (Version None)
Quarter: 2011Q2

REPORT INFORMATION
  Report Type: 
  Country: None (occurrence: None)
  Receive Date: 20110415
  Receipt Date: 20110413
  Transmission Date: 20111010
  Serious: Yes (Other)
  Sender: FDA-Public Use
  Company Number: JP-PFIZER INC-2011080863

PATIENT
  Sex: Male

DRUGS (4)
  1. IBRUPROFEN [Concomitant]
     Dosage: UNK
     Dates: end: 20110101
  2. MUCOSTA [Concomitant]
     Dosage: UNK
     Dates: end: 20110101
  3. MAGNESIUM OXIDE [Concomitant]
     Dosage: UNK
     Dates: end: 20110101
  4. LYRICA [Suspect]
     Indication: BACK PAIN
     Dosage: 225 MG/DAY
     Route: 048
     Dates: start: 20110201, end: 20110101

REACTIONS (3)
  - CHEST PAIN [None]
  - FAECES DISCOLOURED [None]
  - C-REACTIVE PROTEIN INCREASED [None]
